FAERS Safety Report 5360204-0 (Version None)
Quarter: 2007Q2

REPORT INFORMATION
  Report Type: 
  Country: None (occurrence: None)
  Receive Date: 20070618
  Receipt Date: 20070606
  Transmission Date: 20071010
  Serious: Yes (Hospitalization)
  Sender: FDA-Public Use
  Company Number: PHBS2007BR09580

PATIENT
  Sex: Female
  Weight: 63.5 kg

DRUGS (2)
  1. METHERGINE [Suspect]
     Indication: HAEMORRHAGE
     Dosage: 0.125 MG, UNK
  2. BUSCOPAN [Concomitant]
     Indication: PAIN

REACTIONS (3)
  - ABORTION SPONTANEOUS [None]
  - DRUG EXPOSURE DURING PREGNANCY [None]
  - UTERINE CONTRACTIONS DURING PREGNANCY [None]
